FAERS Safety Report 21441059 (Version 1)
Quarter: 2022Q4

REPORT INFORMATION
  Report Type: Spontaneous
  Country: US (occurrence: US)
  Receive Date: 20221011
  Receipt Date: 20221011
  Transmission Date: 20230112
  Serious: No
  Sender: FDA-Public Use
  Company Number: US-BAXTER-2022BAX021377

PATIENT
  Sex: Male

DRUGS (1)
  1. DEXTROSE [Suspect]
     Active Substance: DEXTROSE
     Indication: Hypoglycaemia
     Dosage: MULTIPLE DOSES OF 500 ML BAG
     Route: 042
     Dates: start: 20220929, end: 20220929

REACTIONS (1)
  - Drug ineffective [Recovered/Resolved]

NARRATIVE: CASE EVENT DATE: 20220929
